FAERS Safety Report 11362350 (Version 2)
Quarter: 2015Q3

REPORT INFORMATION
  Report Type: Report from Study
  Country: US (occurrence: US)
  Receive Date: 20150810
  Receipt Date: 20150820
  Transmission Date: 20151125
  Serious: Yes (Death, Other)
  Sender: FDA-Public Use
  Company Number: US-GILEAD-2015-0159384

PATIENT
  Age: 71 Year
  Sex: Male

DRUGS (2)
  1. IDELALISIB [Suspect]
     Active Substance: IDELALISIB
     Dosage: 100 MG, BID
     Route: 048
     Dates: start: 201504, end: 201506
  2. IDELALISIB [Suspect]
     Active Substance: IDELALISIB
     Indication: MASTOCYTIC LEUKAEMIA
     Dosage: 150 MG, BID
     Route: 048
     Dates: start: 20150409, end: 20150609

REACTIONS (2)
  - Off label use [Unknown]
  - Mastocytic leukaemia [Fatal]
